FAERS Safety Report 7417641-X (Version None)
Quarter: 2011Q2

REPORT INFORMATION
  Report Type: 
  Country: None (occurrence: None)
  Receive Date: 20110415
  Receipt Date: 20110405
  Transmission Date: 20111010
  Serious: Yes (Hospitalization)
  Sender: FDA-Public Use
  Company Number: PHHY2011JP28548

PATIENT
  Age: 22 Year
  Sex: Female

DRUGS (1)
  1. TEGRETOL [Suspect]
     Indication: EPILEPSY
     Dosage: 400 MG, QD
     Route: 048

REACTIONS (4)
  - PITUITARY TUMOUR [None]
  - TRI-IODOTHYRONINE DECREASED [None]
  - THYROXINE DECREASED [None]
  - BLOOD THYROID STIMULATING HORMONE DECREASED [None]
